FAERS Safety Report 7632437-1 (Version None)
Quarter: 2011Q3

REPORT INFORMATION
  Report Type: 
  Country: None (occurrence: None)
  Receive Date: 20110725
  Receipt Date: 20100908
  Transmission Date: 20111222
  Serious: No
  Sender: FDA-Public Use
  Company Number: US-BRISTOL-MYERS SQUIBB COMPANY-15276504

PATIENT
  Age: 43 Year
  Sex: Female

DRUGS (3)
  1. TYLENOL-500 [Concomitant]
  2. COUMADIN [Suspect]
     Indication: PULMONARY EMBOLISM
     Dosage: ALSO TAKEN 5MG ORALLY
     Route: 048
     Dates: start: 20100731
  3. PERCOCET [Concomitant]

REACTIONS (2)
  - DYSPNOEA [None]
  - PAIN IN EXTREMITY [None]
